FAERS Safety Report 14152043 (Version 4)
Quarter: 2025Q4

REPORT INFORMATION
  Report Type: Spontaneous
  Country: US (occurrence: US)
  Receive Date: 20171102
  Receipt Date: 20251212
  Transmission Date: 20260117
  Serious: Yes (Other)
  Sender: AUROBINDO
  Company Number: US-MLMSERVICE-20171018-0932217-1

PATIENT
  Age: 43 Year
  Sex: Female

DRUGS (13)
  1. VORICONAZOLE [Suspect]
     Active Substance: VORICONAZOLE
     Indication: Blood electrolytes normal
     Dosage: 250 MILLIGRAM, TWO TIMES A DAY
  2. VORICONAZOLE [Suspect]
     Active Substance: VORICONAZOLE
     Dosage: 200 MILLIGRAM, TWO TIMES A DAY
  3. VORICONAZOLE [Suspect]
     Active Substance: VORICONAZOLE
     Dosage: 6 MILLIGRAM/KILOGRAM, TWO TIMES A DAY (2 DOSES LOADING DOSE)
  4. VORICONAZOLE [Suspect]
     Active Substance: VORICONAZOLE
     Dosage: 4 MILLIGRAM/KILOGRAM, TWO TIMES A DAY
  5. AMPHOTERICIN B [Suspect]
     Active Substance: AMPHOTERICIN B
     Indication: Nodular rash
     Dosage: UNK
     Route: 065
  6. CLOFARABINE [Suspect]
     Active Substance: CLOFARABINE
     Indication: T-cell type acute leukaemia
     Dosage: UNK
     Route: 065
  7. CYCLOPHOSPHAMIDE [Suspect]
     Active Substance: CYCLOPHOSPHAMIDE
     Indication: T-cell type acute leukaemia
     Dosage: UNK
     Route: 065
  8. CYTARABINE [Suspect]
     Active Substance: CYTARABINE
     Indication: T-cell type acute leukaemia
     Dosage: UNK
     Route: 065
  9. ETOPOSIDE [Suspect]
     Active Substance: ETOPOSIDE
     Indication: T-cell type acute leukaemia
     Dosage: UNK
     Route: 065
  10. MITOXANTRONE [Suspect]
     Active Substance: MITOXANTRONE HYDROCHLORIDE
     Indication: T-cell type acute leukaemia
     Dosage: UNK
     Route: 065
  11. PREDNISONE [Suspect]
     Active Substance: PREDNISONE
     Indication: T-cell type acute leukaemia
     Dosage: UNK
     Route: 065
  12. POSACONAZOLE [Suspect]
     Active Substance: POSACONAZOLE
     Indication: Antifungal prophylaxis
     Dosage: 200 MILLIGRAM, 3 TIMES A DAY
  13. MICAFUNGIN [Concomitant]
     Active Substance: MICAFUNGIN SODIUM
     Indication: Product used for unknown indication
     Dosage: 150 MILLIGRAM, ONCE A DAY
     Route: 065

REACTIONS (5)
  - Aspergillus infection [Recovering/Resolving]
  - Febrile neutropenia [Unknown]
  - Swelling face [Unknown]
  - Sinusitis [Unknown]
  - Visual impairment [Unknown]
